FAERS Safety Report 25301127 (Version 1)
Quarter: 2025Q2

REPORT INFORMATION
  Report Type: Spontaneous
  Country: US (occurrence: None)
  Receive Date: 20250510
  Receipt Date: 20250510
  Transmission Date: 20250716
  Serious: Yes (Other)
  Sender: FDA-CTU
  Company Number: None

PATIENT
  Sex: Female

DRUGS (3)
  1. TERIFLUNOMIDE [Suspect]
     Active Substance: TERIFLUNOMIDE
     Indication: Multiple sclerosis
     Dosage: FREQUENCY : DAILY;?
     Route: 048
     Dates: start: 20240518
  2. OZEMPIC INJ 2MG/3ML [Concomitant]
  3. TERIFLUNOMID TAB 7MG [Concomitant]

REACTIONS (4)
  - Knee arthroplasty [None]
  - Fall [None]
  - Weight decreased [None]
  - Multiple sclerosis [None]
